FAERS Safety Report 8241923-5 (Version None)
Quarter: 2012Q1

REPORT INFORMATION
  Report Type: 
  Country: None (occurrence: None)
  Receive Date: 20120329
  Receipt Date: 20120320
  Transmission Date: 20120608
  Serious: Yes (Other)
  Sender: FDA-Public Use
  Company Number: US-BRISTOL-MYERS SQUIBB COMPANY-16465692

PATIENT
  Age: 67 Year
  Sex: Female
  Weight: 77 kg

DRUGS (1)
  1. ABILIFY [Suspect]
     Indication: DEPRESSION
     Dosage: STARTED 4-5 YEARS AGO IT IS STOPPED APPR 1.5YRS AGO

REACTIONS (2)
  - PARKINSON'S DISEASE [None]
  - WEIGHT INCREASED [None]
